FAERS Safety Report 23781595 (Version 1)
Quarter: 2024Q2

REPORT INFORMATION
  Report Type: Other
  Country: IT (occurrence: None)
  Receive Date: 20240425
  Receipt Date: 20240425
  Transmission Date: 20240716
  Serious: Yes (Hospitalization, Other)
  Sender: FDA-Public Use
  Company Number: IT-Square Pharmaceuticals PLC-000005

PATIENT
  Age: 9 Year
  Sex: Female

DRUGS (1)
  1. CALCIUM GLUCONATE [Suspect]
     Active Substance: CALCIUM GLUCONATE
     Indication: Hypocalcaemia

REACTIONS (5)
  - Catheter site extravasation [Recovered/Resolved]
  - Injection site erythema [Recovered/Resolved]
  - Catheter site vesicles [Recovered/Resolved]
  - Calcinosis [Recovered/Resolved]
  - Necrosis [Recovered/Resolved]
